FAERS Safety Report 6116923-1 (Version None)
Quarter: 2009Q1

REPORT INFORMATION
  Report Type: 
  Country: None (occurrence: None)
  Receive Date: 20090314
  Receipt Date: 20090122
  Transmission Date: 20090719
  Serious: No
  Sender: FDA-Public Use
  Company Number: PR-ABBOTT-09P-131-0500163-00

PATIENT
  Sex: Male
  Weight: 66.284 kg

DRUGS (4)
  1. HUMIRA [Suspect]
     Indication: PSORIATIC ARTHROPATHY
     Dosage: 2 PENS 1ST DAY, 1 PEN 8 DAYS AFTER 1ST PENS
     Route: 058
     Dates: start: 20090121
  2. VITAMIN A [Concomitant]
     Indication: VITAMIN SUPPLEMENTATION
     Route: 048
  3. VITAMIN E [Concomitant]
     Indication: VITAMIN SUPPLEMENTATION
     Route: 048
  4. GLUCOSAMINE [Concomitant]
     Indication: MEDICAL DIET
     Route: 048

REACTIONS (3)
  - DYSGEUSIA [None]
  - HEADACHE [None]
  - VISUAL IMPAIRMENT [None]
